FAERS Safety Report 7842063-7 (Version None)
Quarter: 2011Q4

REPORT INFORMATION
  Report Type: 
  Country: None (occurrence: None)
  Receive Date: 20111019
  Receipt Date: 20111006
  Transmission Date: 20120403
  Serious: Yes (Other)
  Sender: FDA-Public Use
  Company Number: 2011SP047161

PATIENT
  Age: 53 Year
  Sex: Female

DRUGS (4)
  1. PREDNISOLONE [Concomitant]
  2. DESLORATADINE [Suspect]
     Indication: PREMEDICATION
     Dosage: 5 MG;QD
     Dates: start: 20110901, end: 20110901
  3. DESLORATADINE [Suspect]
     Indication: COMPUTERISED TOMOGRAM
     Dosage: 5 MG;QD
     Dates: start: 20110901, end: 20110901
  4. DESLORATADINE [Suspect]
     Indication: DRY MOUTH
     Dosage: 5 MG;QD
     Dates: start: 20110901, end: 20110901

REACTIONS (9)
  - DYSPNOEA [None]
  - FEELING ABNORMAL [None]
  - HYPERHIDROSIS [None]
  - CRYING [None]
  - INSOMNIA [None]
  - SUICIDAL IDEATION [None]
  - DRY MOUTH [None]
  - NAUSEA [None]
  - VERTIGO [None]
